FAERS Safety Report 7551837-1 (Version None)
Quarter: 2011Q2

REPORT INFORMATION
  Report Type: 
  Country: None (occurrence: None)
  Receive Date: 20110616
  Receipt Date: 20110613
  Transmission Date: 20111010
  Serious: Yes (Disabling, Other)
  Sender: FDA-Public Use
  Company Number: US-TEVA-286101USA

PATIENT
  Sex: Female

DRUGS (2)
  1. OBETROL [Suspect]
     Dosage: 20 MILLIGRAM;
  2. AMPHETAMINE SULFATE [Suspect]
     Dosage: 20 MILLIGRAM;

REACTIONS (10)
  - HYPERTENSION [None]
  - BLINDNESS [None]
  - READING DISORDER [None]
  - EYE DISORDER [None]
  - BRAIN INJURY [None]
  - HEADACHE [None]
  - NERVOUS SYSTEM DISORDER [None]
  - CARDIOVASCULAR DISORDER [None]
  - VISION BLURRED [None]
  - VISUAL IMPAIRMENT [None]
